FAERS Safety Report 24537891 (Version 2)
Quarter: 2024Q4

REPORT INFORMATION
  Report Type: Spontaneous
  Country: JP (occurrence: JP)
  Receive Date: 20241023
  Receipt Date: 20241031
  Transmission Date: 20250115
  Serious: Yes (Hospitalization, Other)
  Sender: GLAXOSMITHKLINE
  Company Number: JP-GSK-JP2024GSK129087

PATIENT

DRUGS (9)
  1. VALACYCLOVIR HYDROCHLORIDE [Suspect]
     Active Substance: VALACYCLOVIR HYDROCHLORIDE
     Indication: Ophthalmic herpes zoster
     Dosage: UNK
     Route: 048
  2. ACYCLOVIR [Suspect]
     Active Substance: ACYCLOVIR
     Indication: Ophthalmic herpes zoster
     Dosage: UNK
     Route: 042
  3. ACYCLOVIR [Suspect]
     Active Substance: ACYCLOVIR
     Indication: Conjunctivitis
     Dosage: OINTMENT
  4. ACYCLOVIR [Suspect]
     Active Substance: ACYCLOVIR
     Indication: Keratitis
  5. ACYCLOVIR [Suspect]
     Active Substance: ACYCLOVIR
     Indication: Encephalitis
  6. VIDARABINE [Suspect]
     Active Substance: VIDARABINE
     Indication: Ophthalmic herpes zoster
     Dosage: UNK
     Route: 042
  7. AMENAMEVIR [Concomitant]
     Active Substance: AMENAMEVIR
     Indication: Ophthalmic herpes zoster
     Dosage: UNK
  8. DEXAMETHASONE [Concomitant]
     Active Substance: DEXAMETHASONE
     Indication: Ophthalmic herpes zoster
     Dosage: UNK
  9. DEXAMETHASONE [Concomitant]
     Active Substance: DEXAMETHASONE
     Indication: Encephalitis
     Dosage: TAPERING

REACTIONS (4)
  - Encephalopathy [Unknown]
  - Loss of consciousness [Unknown]
  - Disease progression [Unknown]
  - Eyelid function disorder [Unknown]
